FAERS Safety Report 20023720 (Version 3)
Quarter: 2021Q4

REPORT INFORMATION
  Report Type: Spontaneous
  Country: US (occurrence: US)
  Receive Date: 20211102
  Receipt Date: 20211231
  Transmission Date: 20220303
  Serious: Yes (Hospitalization, Other)
  Sender: FDA-Public Use
  Company Number: US-UNITED THERAPEUTICS-UNT-2021-021434

PATIENT
  Age: 26 Year
  Sex: Female
  Weight: 49.887 kg

DRUGS (2)
  1. REMODULIN [Suspect]
     Active Substance: TREPROSTINIL
     Indication: Pulmonary arterial hypertension
     Dosage: UNK, CONTINUING
     Route: 041
     Dates: start: 20210823
  2. REMODULIN [Suspect]
     Active Substance: TREPROSTINIL
     Dosage: 0.006 ?G/KG, CONTINUING
     Route: 041
     Dates: start: 2021

REACTIONS (5)
  - Vascular device infection [Unknown]
  - Staphylococcal infection [Unknown]
  - Limb discomfort [Unknown]
  - Thrombosis in device [Unknown]
  - Sepsis [Unknown]

NARRATIVE: CASE EVENT DATE: 20211021
